FAERS Safety Report 12404775 (Version 1)
Quarter: 2016Q2

REPORT INFORMATION
  Report Type: Spontaneous
  Country: US (occurrence: US)
  Receive Date: 20160525
  Receipt Date: 20160525
  Transmission Date: 20160815
  Serious: No
  Sender: FDA-Public Use
  Company Number: US-BAYER-2016-100209

PATIENT
  Age: 83 Year
  Sex: Female
  Weight: 64.4 kg

DRUGS (1)
  1. BETASERON [Suspect]
     Active Substance: INTERFERON BETA-1B
     Indication: MULTIPLE SCLEROSIS
     Dosage: 250 MG, QOD
     Dates: start: 201405

REACTIONS (1)
  - Weight decreased [None]

NARRATIVE: CASE EVENT DATE: 2015
